FAERS Safety Report 19925810 (Version 4)
Quarter: 2022Q3

REPORT INFORMATION
  Report Type: Report from Study
  Country: US (occurrence: US)
  Receive Date: 20211006
  Receipt Date: 20220701
  Transmission Date: 20221026
  Serious: Yes (Hospitalization, Other)
  Sender: FDA-Public Use
  Company Number: US-TAKEDA-2021TUS061157

PATIENT
  Age: 36 Year
  Sex: Female
  Weight: 59 kg

DRUGS (36)
  1. TEDUGLUTIDE [Suspect]
     Active Substance: TEDUGLUTIDE
     Indication: Short-bowel syndrome
     Dosage: 1 MILLIGRAM, QD
     Route: 042
     Dates: start: 20210128, end: 20210503
  2. TEDUGLUTIDE [Suspect]
     Active Substance: TEDUGLUTIDE
     Indication: Short-bowel syndrome
     Dosage: 1 MILLIGRAM, QD
     Route: 042
     Dates: start: 20210128, end: 20210503
  3. TEDUGLUTIDE [Suspect]
     Active Substance: TEDUGLUTIDE
     Indication: Short-bowel syndrome
     Dosage: 1 MILLIGRAM, QD
     Route: 042
     Dates: start: 20210128, end: 20210503
  4. TEDUGLUTIDE [Suspect]
     Active Substance: TEDUGLUTIDE
     Indication: Short-bowel syndrome
     Dosage: 1 MILLIGRAM, QD
     Route: 042
     Dates: start: 20210128, end: 20210503
  5. TEDUGLUTIDE [Suspect]
     Active Substance: TEDUGLUTIDE
     Dosage: 3 MILLIGRAM, QD
     Route: 042
     Dates: start: 20210503
  6. TEDUGLUTIDE [Suspect]
     Active Substance: TEDUGLUTIDE
     Dosage: 3 MILLIGRAM, QD
     Route: 042
     Dates: start: 20210503
  7. TEDUGLUTIDE [Suspect]
     Active Substance: TEDUGLUTIDE
     Dosage: 3 MILLIGRAM, QD
     Route: 042
     Dates: start: 20210503
  8. TEDUGLUTIDE [Suspect]
     Active Substance: TEDUGLUTIDE
     Dosage: 3 MILLIGRAM, QD
     Route: 042
     Dates: start: 20210503
  9. METHYLPREDNISOLONE ACETATE [Concomitant]
     Active Substance: METHYLPREDNISOLONE ACETATE
     Indication: Pneumonia
     Dosage: 40 MILLIGRAM, QD
     Route: 058
     Dates: start: 20200827, end: 20200827
  10. METOPROLOL TARTRATE [Concomitant]
     Active Substance: METOPROLOL TARTRATE
     Indication: Tachycardia
     Dosage: 5 MILLIGRAM, QD
     Route: 058
     Dates: start: 20200827, end: 20200827
  11. MEROPENEM ACIC [Concomitant]
     Indication: Sepsis
     Dosage: 1 GRAM, QD
     Route: 042
     Dates: start: 20200826, end: 20200829
  12. CLONAZEPAM [Concomitant]
     Active Substance: CLONAZEPAM
     Indication: Anxiety
     Dosage: 0.5 MILLIGRAM, BID
     Route: 048
     Dates: start: 20200826, end: 20200827
  13. ELIQUIS [Concomitant]
     Active Substance: APIXABAN
  14. LOPERAMIDE [Concomitant]
     Active Substance: LOPERAMIDE
     Dosage: 6 MILLIGRAM, BID
     Route: 048
  15. LOMOTIL [Concomitant]
     Active Substance: ATROPINE SULFATE\DIPHENOXYLATE HYDROCHLORIDE
     Dosage: 2 DOSAGE FORM, TID
     Route: 048
  16. GLUTAMINE [Concomitant]
     Active Substance: GLUTAMINE
     Indication: Hypovitaminosis
     Dosage: 5 GRAM, TID
     Route: 048
  17. GLUTAMINE [Concomitant]
     Active Substance: GLUTAMINE
     Indication: Mineral deficiency
     Dosage: 15 GRAM, BID
     Route: 048
     Dates: start: 20210503
  18. GUAR GUM [Concomitant]
     Active Substance: GUAR GUM
     Dosage: 4 GRAM, TID
     Route: 048
  19. LYRICA [Concomitant]
     Active Substance: PREGABALIN
  20. MAGNESIUM GLUCONATE [Concomitant]
     Active Substance: MAGNESIUM GLUCONATE
     Dosage: 500 MILLIGRAM, BID
     Route: 048
  21. OXCARBAZEPINE [Concomitant]
     Active Substance: OXCARBAZEPINE
     Dosage: 150 MILLIGRAM
     Route: 048
  22. SMOFLIPID [Concomitant]
     Active Substance: FISH OIL\MEDIUM-CHAIN TRIGLYCERIDES\OLIVE OIL\SOYBEAN OIL
  23. TIZANIDINE [Concomitant]
     Active Substance: TIZANIDINE
     Dosage: 4 MILLIGRAM, TID
     Route: 048
  24. TPN [Concomitant]
     Active Substance: AMINO ACIDS\DEXTROSE\ELECTROLYTES NOS\SOYBEAN OIL
  25. ACETAMINOPHEN [Concomitant]
     Active Substance: ACETAMINOPHEN
     Indication: Procedural pain
     Dosage: 325 MILLIGRAM
     Route: 048
     Dates: start: 20210930
  26. OXYCODONE [Concomitant]
     Active Substance: OXYCODONE
     Indication: Procedural pain
     Dosage: 10 MILLIGRAM, AS NEEDED
     Route: 048
     Dates: start: 20210930, end: 20211016
  27. APIXABAN [Concomitant]
     Active Substance: APIXABAN
     Dosage: 5 MILLIGRAM, BID
     Route: 048
  28. HYDROMORPHONE [Concomitant]
     Active Substance: HYDROMORPHONE
     Dosage: 0.5 MILLIGRAM
     Route: 042
  29. DIPHENHYDRAMINE [Concomitant]
     Active Substance: DIPHENHYDRAMINE
     Dosage: 0.5 MILLILITER
     Route: 042
  30. APIXABAN [Concomitant]
     Active Substance: APIXABAN
     Dosage: UNK, BID
     Route: 065
  31. PANCRELIPASE 20000 [Concomitant]
     Dosage: UNK, TID
     Route: 048
  32. VIVONEX T.E.N. [Concomitant]
  33. CREON [Concomitant]
     Active Substance: PANCRELIPASE AMYLASE\PANCRELIPASE LIPASE\PANCRELIPASE PROTEASE
     Route: 065
  34. VITAMIN D2 [Concomitant]
     Active Substance: ERGOCALCIFEROL
     Dosage: 50 MICROGRAM, BID
     Route: 048
  35. VIMPAT [Concomitant]
     Active Substance: LACOSAMIDE
     Dosage: 100 MILLIGRAM, BID
     Route: 048
  36. LOVENOX [Concomitant]
     Active Substance: ENOXAPARIN SODIUM
     Dosage: 60 MILLIGRAM
     Route: 058

REACTIONS (4)
  - Device dislocation [Recovered/Resolved]
  - Aspartate aminotransferase increased [Recovered/Resolved]
  - Anaemia [Recovered/Resolved]
  - Blood alkaline phosphatase increased [Recovered/Resolved]

NARRATIVE: CASE EVENT DATE: 20210928
